FAERS Safety Report 22071036 (Version 5)
Quarter: 2023Q2

REPORT INFORMATION
  Report Type: Report from Study
  Country: KR (occurrence: None)
  Receive Date: 20230307
  Receipt Date: 20230515
  Transmission Date: 20230722
  Serious: Yes (Death, Hospitalization)
  Sender: FDA-Public Use
  Company Number: KR-ROCHE-3255628

PATIENT
  Age: 75 Year
  Sex: Female
  Weight: 53 kg

DRUGS (66)
  1. RITUXIMAB [Suspect]
     Active Substance: RITUXIMAB
     Indication: Diffuse large B-cell lymphoma
     Dosage: DATE OF MOST RECENT DOSE OF 570MG OF RITUXIMAB PRIOR TO AE/SAE ONSET 12/DEC/2022
     Route: 041
     Dates: start: 20220905
  2. GEMCITABINE [Suspect]
     Active Substance: GEMCITABINE
     Indication: Diffuse large B-cell lymphoma
     Dosage: DATE OF MOST RECENT DOSE OF 1520MG OF GEMCITABINE PRIOR TO AE ONSET 13/DEC/2022
     Route: 042
     Dates: start: 20220906
  3. OXALIPLATIN [Suspect]
     Active Substance: OXALIPLATIN
     Indication: Diffuse large B-cell lymphoma
     Dosage: DATE OF MOST RECENT DOSE OF 152MG OF OXALIPLATIN PRIOR TO AE ONSET 13/DEC/2022
     Route: 042
     Dates: start: 20220906
  4. ADCAL (SOUTH KOREA) [Concomitant]
     Indication: Hypothyroidism
     Route: 048
  5. SYNTHROID [Concomitant]
     Active Substance: LEVOTHYROXINE SODIUM
     Indication: Hypothyroidism
     Route: 048
  6. SYNTHROID [Concomitant]
     Active Substance: LEVOTHYROXINE SODIUM
     Dates: start: 20230127, end: 20230226
  7. OLMESARTAN MEDOXOMIL [Concomitant]
     Active Substance: OLMESARTAN MEDOXOMIL
     Indication: Hypertension
     Route: 048
  8. NORVASC [Concomitant]
     Active Substance: AMLODIPINE BESYLATE
     Indication: Hypertension
     Route: 048
  9. STAFEN (SOUTH KOREA) [Concomitant]
     Indication: Hyperlipidaemia
     Route: 048
  10. CELEBREX [Concomitant]
     Active Substance: CELECOXIB
     Indication: Osteoarthritis
     Route: 048
     Dates: start: 20211227
  11. EPERINAL SR [Concomitant]
     Indication: Osteoarthritis
     Route: 048
     Dates: start: 20211227
  12. NEXIUM [Concomitant]
     Active Substance: ESOMEPRAZOLE MAGNESIUM
     Indication: Osteoarthritis
     Route: 048
     Dates: start: 20211227
  13. ULTRACET ER SEMI [Concomitant]
     Indication: Osteoarthritis
     Route: 048
     Dates: start: 20211227
  14. JOINS [Concomitant]
     Indication: Osteoarthritis
     Route: 048
     Dates: start: 20211227
  15. SINGULAIR [Concomitant]
     Active Substance: MONTELUKAST SODIUM
     Route: 048
     Dates: start: 20211227
  16. DEXAMETHASONE [Concomitant]
     Active Substance: DEXAMETHASONE
     Route: 042
     Dates: start: 20220905, end: 20220905
  17. DEXAMETHASONE [Concomitant]
     Active Substance: DEXAMETHASONE
     Route: 042
     Dates: start: 20220906, end: 20220906
  18. DEXAMETHASONE [Concomitant]
     Active Substance: DEXAMETHASONE
     Route: 042
     Dates: start: 20220926, end: 20220926
  19. DEXAMETHASONE [Concomitant]
     Active Substance: DEXAMETHASONE
     Route: 042
     Dates: start: 20220927, end: 20220927
  20. DEXAMETHASONE [Concomitant]
     Active Substance: DEXAMETHASONE
     Route: 042
     Dates: start: 20221017, end: 20221017
  21. DEXAMETHASONE [Concomitant]
     Active Substance: DEXAMETHASONE
     Route: 042
     Dates: start: 20221018, end: 20221018
  22. DEXAMETHASONE [Concomitant]
     Active Substance: DEXAMETHASONE
     Route: 042
     Dates: start: 20221121, end: 20221121
  23. DEXAMETHASONE [Concomitant]
     Active Substance: DEXAMETHASONE
     Route: 042
     Dates: start: 20221122, end: 20221122
  24. DEXAMETHASONE [Concomitant]
     Active Substance: DEXAMETHASONE
     Route: 042
     Dates: start: 20221212, end: 20221212
  25. DEXAMETHASONE [Concomitant]
     Active Substance: DEXAMETHASONE
     Route: 042
     Dates: start: 20221213, end: 20221213
  26. TACENOL 8HOURS ER [Concomitant]
     Route: 048
     Dates: start: 20221017, end: 20221017
  27. TACENOL 8HOURS ER [Concomitant]
     Route: 048
     Dates: start: 20221121, end: 20221121
  28. MECKOOL [Concomitant]
     Route: 042
     Dates: start: 20220906, end: 20220906
  29. MECKOOL [Concomitant]
     Route: 042
     Dates: start: 20220927, end: 20220927
  30. MECKOOL [Concomitant]
     Route: 042
     Dates: start: 20221018, end: 20221018
  31. MECKOOL [Concomitant]
     Route: 042
     Dates: start: 20221122, end: 20221122
  32. ATIVAN [Concomitant]
     Active Substance: LORAZEPAM
     Route: 042
     Dates: start: 20220906, end: 20220906
  33. ATIVAN [Concomitant]
     Active Substance: LORAZEPAM
     Route: 042
     Dates: start: 20220927, end: 20220927
  34. ATIVAN [Concomitant]
     Active Substance: LORAZEPAM
     Route: 042
     Dates: start: 20221018, end: 20221018
  35. LASIX [Concomitant]
     Active Substance: FUROSEMIDE
     Route: 042
     Dates: start: 20220906, end: 20220906
  36. LASIX [Concomitant]
     Active Substance: FUROSEMIDE
     Route: 042
     Dates: start: 20220927, end: 20220927
  37. LASIX [Concomitant]
     Active Substance: FUROSEMIDE
     Route: 042
     Dates: start: 20221018, end: 20221018
  38. METOCLOPRAMIDE HYDROCHLORIDE [Concomitant]
     Active Substance: METOCLOPRAMIDE HYDROCHLORIDE
     Route: 048
     Dates: start: 20220914, end: 20220919
  39. LYRICA [Concomitant]
     Active Substance: PREGABALIN
     Indication: Neuropathy peripheral
     Route: 048
     Dates: start: 20220914, end: 20220914
  40. LYRICA [Concomitant]
     Active Substance: PREGABALIN
     Route: 048
     Dates: start: 20230101, end: 20230101
  41. LYRICA [Concomitant]
     Active Substance: PREGABALIN
     Route: 048
     Dates: start: 20230104, end: 20230115
  42. LIPEGFILGRASTIM [Concomitant]
     Active Substance: LIPEGFILGRASTIM
     Route: 058
     Dates: start: 20220928, end: 20220928
  43. MEGACE [Concomitant]
     Active Substance: MEGESTROL ACETATE
     Route: 048
     Dates: start: 20221017, end: 20221025
  44. MEGACE [Concomitant]
     Active Substance: MEGESTROL ACETATE
     Route: 048
     Dates: start: 20230101, end: 20230115
  45. FOTAGEL [Concomitant]
     Route: 048
     Dates: start: 20221017, end: 20221023
  46. LOPAINE [Concomitant]
     Route: 048
     Dates: start: 20220927, end: 20220927
  47. LOPAINE [Concomitant]
     Route: 048
     Dates: start: 20220928, end: 20221002
  48. MEGACEF SUSPENSION [Concomitant]
     Indication: Decreased appetite
     Route: 048
     Dates: start: 20221221, end: 20221228
  49. OPALMON [Concomitant]
     Active Substance: LIMAPROST
     Route: 048
     Dates: start: 20230103
  50. FENOFIBRATE [Concomitant]
     Active Substance: FENOFIBRATE
     Route: 048
     Dates: start: 20221120, end: 20230115
  51. LIVALO [Concomitant]
     Active Substance: PITAVASTATIN CALCIUM
     Dates: start: 20221120, end: 20230115
  52. NALOXONE HYDROCHLORIDE\OXYCODONE HYDROCHLORIDE [Concomitant]
     Active Substance: NALOXONE HYDROCHLORIDE\OXYCODONE HYDROCHLORIDE
     Route: 048
     Dates: start: 20230104, end: 20230115
  53. NALOXONE HYDROCHLORIDE\OXYCODONE HYDROCHLORIDE [Concomitant]
     Active Substance: NALOXONE HYDROCHLORIDE\OXYCODONE HYDROCHLORIDE
     Route: 048
     Dates: start: 20230104, end: 20230104
  54. NALOXONE HYDROCHLORIDE\OXYCODONE HYDROCHLORIDE [Concomitant]
     Active Substance: NALOXONE HYDROCHLORIDE\OXYCODONE HYDROCHLORIDE
     Route: 048
     Dates: start: 20230106, end: 20230115
  55. DICAMAX [Concomitant]
     Route: 048
     Dates: start: 20230101, end: 20230115
  56. REBAMIPIDE [Concomitant]
     Active Substance: REBAMIPIDE
     Route: 048
     Dates: start: 20230108, end: 20230115
  57. ETOMIDATE [Concomitant]
     Active Substance: ETOMIDATE
     Route: 042
     Dates: start: 20230116, end: 20230116
  58. MIDAZOLAM [Concomitant]
     Active Substance: MIDAZOLAM
     Route: 042
     Dates: start: 20230116, end: 20230116
  59. TIVARE [Concomitant]
     Route: 042
     Dates: start: 20230116, end: 20230226
  60. PROPOFOL [Concomitant]
     Active Substance: PROPOFOL
     Route: 042
     Dates: start: 20230116, end: 20230202
  61. GASTER (SOUTH KOREA) [Concomitant]
     Route: 042
     Dates: start: 20230117, end: 20230226
  62. NORPIN [NOREPINEPHRINE] [Concomitant]
     Route: 042
     Dates: start: 20230117, end: 20230226
  63. PRECEDEX [Concomitant]
     Active Substance: DEXMEDETOMIDINE HYDROCHLORIDE
     Route: 042
     Dates: start: 20230118, end: 20230226
  64. VECARON [Concomitant]
     Route: 042
     Dates: start: 20230118, end: 20230126
  65. GASMOTIN POWDER [Concomitant]
     Dates: start: 20230127, end: 20230216
  66. SULFAMETHOXAZOLE\TRIMETHOPRIM [Concomitant]
     Active Substance: SULFAMETHOXAZOLE\TRIMETHOPRIM
     Route: 042
     Dates: start: 20230114, end: 20230118

REACTIONS (2)
  - Pneumonia [Fatal]
  - Pneumonitis [Not Recovered/Not Resolved]

NARRATIVE: CASE EVENT DATE: 20230101
